FAERS Safety Report 4849046-X (Version None)
Quarter: 2005Q4

REPORT INFORMATION
  Report Type: 
  Country: None (occurrence: None)
  Receive Date: 20051209
  Receipt Date: 20050902
  Transmission Date: 20060501
  Serious: Yes (Hospitalization)
  Sender: FDA-Public Use
  Company Number: JP-BOEHRINGER INGELHEIM PHARMACEUTICALS, INC.-2005-BP-15614YA

PATIENT
  Sex: Male

DRUGS (6)
  1. HARNAL [Suspect]
     Indication: BENIGN PROSTATIC HYPERPLASIA
     Route: 048
     Dates: start: 20050724, end: 20050824
  2. BUFFERIN [Suspect]
     Indication: CEREBRAL INFARCTION
     Route: 048
     Dates: start: 20050724, end: 20050824
  3. RENIVEZE [Suspect]
     Indication: HYPERTENSION
     Route: 048
     Dates: start: 20050814, end: 20050824
  4. SENNOSIDE [Concomitant]
     Indication: CONSTIPATION
     Route: 048
     Dates: start: 20050724, end: 20050824
  5. CETILO (RHUBARB/SENNA) [Concomitant]
     Indication: CONSTIPATION
     Dosage: 3 DF
     Route: 048
     Dates: start: 20050724, end: 20050824
  6. INSULIN INJECTION, BIPHASIC [Concomitant]
     Indication: DIABETES MELLITUS
     Route: 058
     Dates: start: 20050725

REACTIONS (3)
  - BLOOD ALKALINE PHOSPHATASE INCREASED [None]
  - GAMMA-GLUTAMYLTRANSFERASE INCREASED [None]
  - HEPATOBILIARY DISEASE [None]
